FAERS Safety Report 4906905-7 (Version None)
Quarter: 2006Q1

REPORT INFORMATION
  Report Type: 
  Country: None (occurrence: None)
  Receive Date: 20060207
  Receipt Date: 20060117
  Transmission Date: 20060701
  Serious: Yes (Death)
  Sender: FDA-Public Use
  Company Number: IN200601003065

PATIENT
  Age: 40 Year
  Sex: Female
  Weight: 80 kg

DRUGS (3)
  1. XIGRIS (DROTRECOGIN ALFA (ACTIVATED) [Suspect]
     Indication: SEPSIS
     Dosage: 24 UG/KG/HR, CONTINUOUS, INTRAVENOUS
     Route: 042
     Dates: start: 20060114
  2. MEROPENEM (MEROPENEM) [Concomitant]
  3. DOBUTAMINE (DOBUTAMINE) [Concomitant]

REACTIONS (1)
  - CARDIAC ARREST [None]
